FAERS Safety Report 8445805-5 (Version None)
Quarter: 2012Q2

REPORT INFORMATION
  Report Type: 
  Country: None (occurrence: None)
  Receive Date: 20120611
  Receipt Date: 20120526
  Transmission Date: 20120825
  Serious: Yes (Hospitalization)
  Sender: FDA-Public Use
  Company Number: 2012AP001620

PATIENT
  Age: 43 Year
  Sex: Male

DRUGS (7)
  1. OFLOXACIN [Suspect]
     Indication: PROSTATITIS
  2. INTERFERON [Concomitant]
  3. ACETAMINOPHEN [Concomitant]
  4. CLONAZEPAM [Concomitant]
  5. BUPRENORPHINE [Concomitant]
  6. OLANZAPINE [Suspect]
     Indication: MENTAL DISORDER
  7. RIBAVIRIN [Concomitant]

REACTIONS (7)
  - DRUG RASH WITH EOSINOPHILIA AND SYSTEMIC SYMPTOMS [None]
  - LYMPHADENOPATHY [None]
  - DERMATITIS EXFOLIATIVE [None]
  - LYMPHOCYTE MORPHOLOGY ABNORMAL [None]
  - HEPATOMEGALY [None]
  - GENERALISED OEDEMA [None]
  - INTERSTITIAL LUNG DISEASE [None]
